FAERS Safety Report 4744330-2 (Version None)
Quarter: 2005Q3

REPORT INFORMATION
  Report Type: 
  Country: None (occurrence: None)
  Receive Date: 20050809
  Receipt Date: 20050727
  Transmission Date: 20060218
  Serious: Yes (Life-Threatening, Hospitalization, Other)
  Sender: FDA-Public Use
  Company Number: MEDI-0003085

PATIENT
  Age: 52 Year
  Sex: Male
  Weight: 90 kg

DRUGS (6)
  1. ETHYOL [Suspect]
     Indication: NEOPLASM MALIGNANT
     Dosage: 400 MG, 5 IN 1 WK, INTRAVENOUS
     Route: 042
     Dates: start: 20050214, end: 20050317
  2. RADIATION THERAPY [Concomitant]
  3. CISPLATIN [Concomitant]
  4. SOLU-MEDROL [Concomitant]
  5. ZOPHREN (ONDANSETRON HYDROCHLORIDE) [Concomitant]
  6. PRIMPERAN TAB [Concomitant]

REACTIONS (36)
  - ABSCESS [None]
  - ANOREXIA [None]
  - ASTHENIA [None]
  - ATELECTASIS [None]
  - BACTERIAL INFECTION [None]
  - BLOOD GLUCOSE INCREASED [None]
  - BLOOD POTASSIUM INCREASED [None]
  - CHEILITIS [None]
  - DEHYDRATION [None]
  - DYSPHAGIA [None]
  - ENDOCARDITIS BACTERIAL [None]
  - FEEDING DISORDER [None]
  - GLYCOSURIA [None]
  - HAEMATURIA [None]
  - HAEMOGLOBIN ABNORMAL [None]
  - HYPERURICAEMIA [None]
  - HYPOALBUMINAEMIA [None]
  - LEUKOPENIA [None]
  - LYMPHOPENIA [None]
  - PHARYNGOLARYNGEAL PAIN [None]
  - PRURITUS [None]
  - RALES [None]
  - RASH MACULO-PAPULAR [None]
  - RENAL FAILURE [None]
  - RESPIRATORY ALKALOSIS [None]
  - SKIN BURNING SENSATION [None]
  - SKIN HAEMORRHAGE [None]
  - SKIN INFECTION [None]
  - SKIN LESION [None]
  - STAPHYLOCOCCAL ABSCESS [None]
  - STAPHYLOCOCCAL BACTERAEMIA [None]
  - STAPHYLOCOCCAL INFECTION [None]
  - TACHYCARDIA [None]
  - THROMBOCYTOPENIA [None]
  - TOXIC EPIDERMAL NECROLYSIS [None]
  - WOUND SECRETION [None]
